FAERS Safety Report 4785391-4 (Version None)
Quarter: 2005Q3

REPORT INFORMATION
  Report Type: 
  Country: None (occurrence: None)
  Receive Date: 20050929
  Receipt Date: 20050914
  Transmission Date: 20060218
  Serious: Yes (Death)
  Sender: FDA-Public Use
  Company Number: 8012106

PATIENT

DRUGS (1)
  1. KEPPRA [Suspect]

REACTIONS (1)
  - DEATH [None]
